FAERS Safety Report 7676314-9 (Version None)
Quarter: 2011Q3

REPORT INFORMATION
  Report Type: 
  Country: None (occurrence: None)
  Receive Date: 20110811
  Receipt Date: 20110803
  Transmission Date: 20111222
  Serious: Yes (Death)
  Sender: FDA-Public Use
  Company Number: US-CELGENEUS-163-20785-11053551

PATIENT
  Sex: Female
  Weight: 72 kg

DRUGS (1)
  1. THALOMID [Suspect]
     Dosage: 50-100 MG
     Route: 048
     Dates: start: 20080922

REACTIONS (1)
  - MULTIPLE MYELOMA [None]
